FAERS Safety Report 16847328 (Version 1)
Quarter: 2019Q3

REPORT INFORMATION
  Report Type: Spontaneous
  Country: US (occurrence: US)
  Receive Date: 20190924
  Receipt Date: 20190924
  Transmission Date: 20191005
  Serious: Yes (Death)
  Sender: FDA-Public Use
  Company Number: US-CUMBERLAND-2019-US-000002

PATIENT
  Age: 63 Year
  Sex: Female

DRUGS (1)
  1. VIBATIV [Suspect]
     Active Substance: TELAVANCIN HYDROCHLORIDE
     Route: 042
     Dates: start: 20190423, end: 20190514

REACTIONS (2)
  - Sepsis [Fatal]
  - Renal impairment [Unknown]

NARRATIVE: CASE EVENT DATE: 20190514
